FAERS Safety Report 7153110-2 (Version None)
Quarter: 2010Q4

REPORT INFORMATION
  Report Type: 
  Country: None (occurrence: None)
  Receive Date: 20101213
  Receipt Date: 20101201
  Transmission Date: 20110411
  Serious: Yes (Hospitalization)
  Sender: FDA-Public Use
  Company Number: PHHY2010CA81681

PATIENT
  Age: 72 Year
  Sex: Female

DRUGS (2)
  1. METOPROLOL [Suspect]
     Dosage: 3.75 G
  2. HYDROCHLOROTHIAZIDE [Suspect]
     Dosage: 1.5 G

REACTIONS (3)
  - HYPOTENSION [None]
  - OVERDOSE [None]
  - SINUS BRADYCARDIA [None]
